FAERS Safety Report 5740748-X (Version None)
Quarter: 2008Q2

REPORT INFORMATION
  Report Type: 
  Country: None (occurrence: None)
  Receive Date: 20080516
  Receipt Date: 20080515
  Transmission Date: 20081010
  Serious: Yes (Hospitalization)
  Sender: FDA-Public Use
  Company Number: GR-WYE-G01542708

PATIENT
  Age: 71 Year
  Sex: Female

DRUGS (5)
  1. TYGACIL [Suspect]
     Indication: KNEE ARTHROPLASTY
     Route: 042
     Dates: start: 20080509, end: 20080513
  2. ACETAMINOPHEN [Concomitant]
  3. LONARID [Concomitant]
  4. ENOXAPARIN SODIUM [Concomitant]
  5. SALOSPIR [Concomitant]

REACTIONS (5)
  - ENANTHEMA [None]
  - HYPERSENSITIVITY [None]
  - PRURITUS [None]
  - PYREXIA [None]
  - RASH MACULAR [None]
